FAERS Safety Report 23982021 (Version 2)
Quarter: 2025Q4

REPORT INFORMATION
  Report Type: Report from Study
  Country: US (occurrence: US)
  Receive Date: 20240617
  Receipt Date: 20251016
  Transmission Date: 20260118
  Serious: No
  Sender: AGIOS PHARMACEUTICALS
  Company Number: US-AGIOS-2406US03784

PATIENT

DRUGS (1)
  1. MITAPIVAT [Suspect]
     Active Substance: MITAPIVAT
     Indication: Pyruvate kinase deficiency anaemia
     Route: 065

REACTIONS (15)
  - Fatigue [Unknown]
  - Dyspnoea [Unknown]
  - Pallor [Unknown]
  - Brain fog [Unknown]
  - Bone pain [Unknown]
  - Arthralgia [Unknown]
  - Memory impairment [Unknown]
  - Dizziness [Unknown]
  - Exercise tolerance decreased [Unknown]
  - Disturbance in attention [Unknown]
  - Impaired work ability [Unknown]
  - Increased need for sleep [Unknown]
  - Asthenia [Unknown]
  - Pyrexia [Unknown]
  - Illness [Unknown]
